FAERS Safety Report 5053851-7 (Version None)
Quarter: 2006Q3

REPORT INFORMATION
  Report Type: 
  Country: None (occurrence: None)
  Receive Date: 20060718
  Receipt Date: 20060713
  Transmission Date: 20061208
  Serious: Yes (Hospitalization)
  Sender: FDA-Public Use
  Company Number: 454695

PATIENT
  Age: 82 Year
  Sex: Male

DRUGS (3)
  1. CARVEDILOL [Suspect]
     Indication: MYOCARDIAL INFARCTION
     Dosage: 1.25MG TWICE PER DAY
     Route: 048
     Dates: start: 20041217
  2. LASIX [Concomitant]
     Dates: start: 20041206
  3. MICARDIS [Concomitant]
     Dates: start: 20041206

REACTIONS (1)
  - PLEURAL EFFUSION [None]
